FAERS Safety Report 15661221 (Version 1)
Quarter: 2018Q4

REPORT INFORMATION
  Report Type: Spontaneous
  Country: US (occurrence: US)
  Receive Date: 20181116
  Receipt Date: 20181116
  Transmission Date: 20190205
  Serious: Yes (Hospitalization)
  Sender: FDA-Public Use
  Company Number: None

PATIENT
  Age: 16 Year
  Sex: Male

DRUGS (3)
  1. ENBREL [Suspect]
     Active Substance: ETANERCEPT
     Indication: JUVENILE IDIOPATHIC ARTHRITIS
     Route: 058
     Dates: start: 20180301
  2. PREDNISONE. [Concomitant]
     Active Substance: PREDNISONE
  3. DICLOFEN POT [Concomitant]

REACTIONS (2)
  - Condition aggravated [None]
  - Appendicitis [None]

NARRATIVE: CASE EVENT DATE: 201807
